FAERS Safety Report 11689591 (Version 1)
Quarter: 2015Q4

REPORT INFORMATION
  Report Type: Spontaneous
  Country: US (occurrence: US)
  Receive Date: 20151102
  Receipt Date: 20151102
  Transmission Date: 20160304
  Serious: No
  Sender: FDA-Public Use
  Company Number: US-BIOGENIDEC-2015BI142302

PATIENT
  Sex: Female

DRUGS (5)
  1. DIMETHYL FUMARATE [Concomitant]
     Active Substance: DIMETHYL FUMARATE
  2. TECFIDERA [Suspect]
     Active Substance: DIMETHYL FUMARATE
     Indication: PRODUCT USED FOR UNKNOWN INDICATION
  3. AMPYRA [Concomitant]
     Active Substance: DALFAMPRIDINE
  4. REBIF [Concomitant]
     Active Substance: INTERFERON BETA-1A
  5. WELCHOL [Concomitant]
     Active Substance: COLESEVELAM HYDROCHLORIDE

REACTIONS (8)
  - Hepatic enzyme increased [Unknown]
  - Nausea [Unknown]
  - Mood swings [Unknown]
  - Multiple sclerosis [Unknown]
  - Emotional disorder [Unknown]
  - Gait disturbance [Unknown]
  - Flatulence [Unknown]
  - Influenza like illness [Unknown]
